FAERS Safety Report 10028754 (Version 1)
Quarter: 2014Q1

REPORT INFORMATION
  Report Type: Report from Study
  Country: GB (occurrence: GB)
  Receive Date: 20140321
  Receipt Date: 20140321
  Transmission Date: 20141002
  Serious: Yes (Death)
  Sender: FDA-Public Use
  Company Number: GB-PFIZER INC-2014078480

PATIENT
  Age: 79 Year
  Sex: Female

DRUGS (1)
  1. BOSUTINIB [Suspect]
     Dosage: 400 MG, DAILY
     Dates: start: 201302

REACTIONS (1)
  - Death [Fatal]
